FAERS Safety Report 4638539-6 (Version None)
Quarter: 2005Q2

REPORT INFORMATION
  Report Type: 
  Country: None (occurrence: None)
  Receive Date: 20050418
  Receipt Date: 20050418
  Transmission Date: 20051028
  Serious: Yes (Other)
  Sender: FDA-Public Use
  Company Number: None

PATIENT
  Age: 35 Year
  Sex: Female
  Weight: 78.0187 kg

DRUGS (2)
  1. TERBINAFINE [Suspect]
     Indication: ONYCHOMYCOSIS
     Dosage: 250MG  PO DAILY
     Route: 048
     Dates: start: 20050322, end: 20050331
  2. ZOLOFT [Concomitant]

REACTIONS (3)
  - ANOREXIA [None]
  - DIZZINESS [None]
  - NAUSEA [None]
